APPROVED DRUG PRODUCT: LOSARTAN POTASSIUM
Active Ingredient: LOSARTAN POTASSIUM
Strength: 25MG
Dosage Form/Route: TABLET;ORAL
Application: A217396 | Product #001 | TE Code: AB
Applicant: MSN LABORATORIES PRIVATE LTD
Approved: Aug 14, 2023 | RLD: No | RS: No | Type: RX